FAERS Safety Report 19009506 (Version 5)
Quarter: 2022Q2

REPORT INFORMATION
  Report Type: Report from Study
  Country: GB (occurrence: GB)
  Receive Date: 20210316
  Receipt Date: 20220408
  Transmission Date: 20220721
  Serious: Yes (Other)
  Sender: FDA-Public Use
  Company Number: GB-CELLTRION INC.-2021GB003246

PATIENT

DRUGS (16)
  1. TRASTUZUMAB [Suspect]
     Active Substance: TRASTUZUMAB
     Indication: Breast cancer
     Dosage: 882 MILLIGRAM, Q3WK (PHARMACEUTICAL DOSE FORM: 293;CUMULATIVE DOSE TO FIRST REACTION: 882MG)
     Route: 041
     Dates: start: 20180502
  2. TRASTUZUMAB [Suspect]
     Active Substance: TRASTUZUMAB
     Dosage: 651 MILLIGRAM, Q3WK (PHARMACEUTICAL DOSE FORM: 293); CUMULATIVE DOSE TO FIRST REACTION: 31 MG
     Route: 041
     Dates: start: 20180523, end: 20200122
  3. GOSERELIN [Suspect]
     Active Substance: GOSERELIN
     Indication: Product used for unknown indication
     Dosage: 3.6 MILLIGRAM, Q4WK
     Route: 058
     Dates: start: 201801, end: 20180419
  4. GOSERELIN [Suspect]
     Active Substance: GOSERELIN
     Dosage: 3.6 MILLIGRAM, Q4WK
     Route: 058
     Dates: start: 20180907, end: 20200122
  5. PERTUZUMAB [Suspect]
     Active Substance: PERTUZUMAB
     Indication: Breast cancer
     Dosage: 840 MILLIGRAM, Q3WK (CUMULATIVE DOSE TO FIRST REACTION: 840 MG)
     Route: 042
     Dates: start: 20180502
  6. PERTUZUMAB [Suspect]
     Active Substance: PERTUZUMAB
     Dosage: 420 MILLIGRAM, Q3WK(CUMULATIVE DOSE TO FIRST REACTION: 20 MG)
     Route: 042
     Dates: start: 20180523
  7. ADO-TRASTUZUMAB EMTANSINE [Suspect]
     Active Substance: ADO-TRASTUZUMAB EMTANSINE
     Indication: Breast cancer
     Dosage: 320 MILLIGRAM, Q3WK
     Route: 042
     Dates: start: 20200616
  8. ADO-TRASTUZUMAB EMTANSINE [Suspect]
     Active Substance: ADO-TRASTUZUMAB EMTANSINE
     Dosage: 380 MILLIGRAM, Q3WK
     Route: 042
     Dates: start: 20200129, end: 20200603
  9. XGEVA [Suspect]
     Active Substance: DENOSUMAB
     Indication: Product used for unknown indication
     Dosage: 120 MILLIGRAM (PHARMACEUTICAL DOSE FORM:231)
     Route: 058
     Dates: start: 20200513
  10. DOCETAXEL [Suspect]
     Active Substance: DOCETAXEL
     Indication: Product used for unknown indication
     Dosage: 148 MILLIGRAM, Q3WK
     Route: 042
     Dates: start: 20180502, end: 20180523
  11. DOCETAXEL [Suspect]
     Active Substance: DOCETAXEL
     Dosage: 120 MILLIGRAM, Q3WK
     Route: 042
     Dates: start: 20180613, end: 20180725
  12. EXEMESTANE [Suspect]
     Active Substance: EXEMESTANE
     Indication: Product used for unknown indication
     Dosage: 25 MILLIGRAM, ONCE A DAY
     Route: 048
     Dates: start: 201801, end: 20180419
  13. EXEMESTANE [Suspect]
     Active Substance: EXEMESTANE
     Dosage: 25 MILLIGRAM, ONCE A DAY
     Route: 048
     Dates: start: 20180921, end: 20200122
  14. BENZYDAMINE [Concomitant]
     Active Substance: BENZYDAMINE
     Indication: Stomatitis
     Dosage: 15 MILLITER
     Route: 048
     Dates: start: 20180510
  15. IRBESARTAN [Concomitant]
     Active Substance: IRBESARTAN
     Dosage: 300 MILLIGRAM, QD
     Route: 048
     Dates: start: 1993
  16. MOVICOL [Concomitant]
     Active Substance: POLYETHYLENE GLYCOL 3350\POTASSIUM CHLORIDE\SODIUM BICARBONATE\SODIUM CHLORIDE
     Indication: Constipation
     Dosage: 13.8 GRAM
     Route: 065
     Dates: start: 20200501

REACTIONS (3)
  - Neuropathy peripheral [Recovered/Resolved with Sequelae]
  - Weight decreased [Recovered/Resolved with Sequelae]
  - Off label use [Unknown]

NARRATIVE: CASE EVENT DATE: 20180523
